FAERS Safety Report 12350202 (Version 1)
Quarter: 2016Q2

REPORT INFORMATION
  Report Type: Spontaneous
  Country: US (occurrence: None)
  Receive Date: 20160509
  Receipt Date: 20160509
  Transmission Date: 20160815
  Serious: No
  Sender: FDA-Public Use
  Company Number: None

PATIENT
  Age: 65 Year
  Sex: Female
  Weight: 90.72 kg

DRUGS (1)
  1. CIPROFLOXACIN HCL [Suspect]
     Active Substance: CIPROFLOXACIN HYDROCHLORIDE
     Indication: DIVERTICULITIS
     Route: 048
     Dates: start: 20160428, end: 20160430

REACTIONS (5)
  - Diarrhoea [None]
  - Nausea [None]
  - Abdominal discomfort [None]
  - Burning sensation [None]
  - Neuropathy peripheral [None]

NARRATIVE: CASE EVENT DATE: 20160430
